FAERS Safety Report 20809984 (Version 3)
Quarter: 2022Q2

REPORT INFORMATION
  Report Type: Spontaneous
  Country: FR (occurrence: FR)
  Receive Date: 20220510
  Receipt Date: 20220516
  Transmission Date: 20220721
  Serious: Yes (Life-Threatening, Hospitalization, Other)
  Sender: FDA-Public Use
  Company Number: FR-MLMSERVICE-20220428-3530854-1

PATIENT
  Age: 92 Year
  Sex: Male

DRUGS (3)
  1. SILDENAFIL CITRATE [Suspect]
     Active Substance: SILDENAFIL CITRATE
     Indication: Erectile dysfunction
     Dosage: UNK
  2. ASPIRIN [Concomitant]
     Active Substance: ASPIRIN
     Indication: Transient ischaemic attack
     Dosage: 100 MG, 1X/DAY
  3. BISOPROLOL [Concomitant]
     Active Substance: BISOPROLOL
     Indication: Transient ischaemic attack
     Dosage: 2.5 MG, 1X/DAY

REACTIONS (4)
  - Road traffic accident [Unknown]
  - Impaired driving ability [Unknown]
  - Shock haemorrhagic [Unknown]
  - Multiple injuries [Unknown]
